FAERS Safety Report 19069632 (Version 1)
Quarter: 2021Q1

REPORT INFORMATION
  Report Type: Spontaneous
  Country: US (occurrence: US)
  Receive Date: 20210329
  Receipt Date: 20210329
  Transmission Date: 20210420
  Serious: Yes (Other)
  Sender: FDA-Public Use
  Company Number: None

PATIENT
  Age: 54 Year
  Sex: Female
  Weight: 83.25 kg

DRUGS (5)
  1. LEVOTHYROXINE. [Concomitant]
     Active Substance: LEVOTHYROXINE
  2. SALINE NASAL SPRAY [Suspect]
     Active Substance: SODIUM CHLORIDE
     Indication: NASAL DRYNESS
     Dosage: ?          QUANTITY:3 OUNCE(S);?
     Route: 055
     Dates: start: 20210328, end: 20210328
  3. AIRBORNE [Concomitant]
     Active Substance: HERBALS\MINERALS\VITAMINS
  4. PANTOPRAZOLE [Concomitant]
     Active Substance: PANTOPRAZOLE
  5. ELIQUIS [Concomitant]
     Active Substance: APIXABAN

REACTIONS (3)
  - Nasal discomfort [None]
  - Burning sensation [None]
  - Throat irritation [None]

NARRATIVE: CASE EVENT DATE: 20210328
